FAERS Safety Report 12297587 (Version 3)
Quarter: 2016Q2

REPORT INFORMATION
  Report Type: Report from Study
  Country: FR (occurrence: FR)
  Receive Date: 20160422
  Receipt Date: 20160517
  Transmission Date: 20160815
  Serious: Yes (Death, Hospitalization, Other)
  Sender: FDA-Public Use
  Company Number: FR-BAYER-2016-071141

PATIENT
  Age: 44 Year
  Sex: Male
  Weight: 70 kg

DRUGS (5)
  1. SKENAN [Concomitant]
     Active Substance: MORPHINE SULFATE
     Indication: PAIN
     Dosage: UNK
     Route: 048
     Dates: start: 201511
  2. SOLUPRED [PREDNISOLONE] [Concomitant]
     Active Substance: PREDNISOLONE
     Indication: PAIN
     Dosage: UNK
     Route: 048
     Dates: start: 20160330
  3. ESOMEPRAZOLE [Concomitant]
     Active Substance: ESOMEPRAZOLE
     Indication: PROPHYLAXIS
     Dosage: UNK
     Route: 048
     Dates: start: 20160330
  4. VERSATIS [Concomitant]
     Active Substance: LIDOCAINE
     Indication: PAIN
     Dosage: UNK
     Route: 023
     Dates: start: 201511
  5. REGORAFENIB [Suspect]
     Active Substance: REGORAFENIB
     Indication: EWING^S SARCOMA
     Dosage: 160 MG, QD
     Route: 048
     Dates: start: 20160317, end: 20160406

REACTIONS (6)
  - Haemoptysis [Fatal]
  - Anaemia [Not Recovered/Not Resolved]
  - Liver injury [None]
  - Acute lung injury [Not Recovered/Not Resolved]
  - Weight decreased [None]
  - Thrombocytopenia [Fatal]

NARRATIVE: CASE EVENT DATE: 201604
